FAERS Safety Report 24305162 (Version 1)
Quarter: 2024Q3

REPORT INFORMATION
  Report Type: Report from Study
  Country: US (occurrence: US)
  Receive Date: 20240911
  Receipt Date: 20240911
  Transmission Date: 20241016
  Serious: Yes (Hospitalization, Other)
  Sender: ARGENX BVBA
  Company Number: US-ARGENX-2024-ARGX-US007413

PATIENT

DRUGS (1)
  1. EFGARTIGIMOD ALFA-FCAB [Suspect]
     Active Substance: EFGARTIGIMOD ALFA-FCAB
     Indication: Product used for unknown indication
     Dosage: UNK
     Route: 042
     Dates: start: 20240830

REACTIONS (3)
  - Pulmonary congestion [Unknown]
  - Cough [Unknown]
  - Nasal congestion [Unknown]

NARRATIVE: CASE EVENT DATE: 20240830
